FAERS Safety Report 8879731 (Version 2)
Quarter: 2012Q4

REPORT INFORMATION
  Report Type: 
  Country: US (occurrence: US)
  Receive Date: 20121031
  Receipt Date: 20121206
  Transmission Date: 20130627
  Serious: Yes (Other)
  Sender: FDA-Public Use
  Company Number: US-FRI-1000039773

PATIENT
  Age: 69 None
  Sex: Female

DRUGS (10)
  1. VIIBRYD [Suspect]
     Indication: DEPRESSION
     Dosage: 40MG
     Route: 048
     Dates: start: 201206
  2. VIIBRYD [Suspect]
     Dosage: 10MG
     Route: 048
     Dates: start: 20120925, end: 20121126
  3. VIIBRYD [Suspect]
     Dosage: 20MG
     Route: 048
     Dates: start: 20121127
  4. TRAMADOL [Concomitant]
     Indication: BACK PAIN
     Dosage: 50MG
  5. SEROQUEL [Concomitant]
     Indication: BIPOLAR DISORDER
     Dosage: 50MG
  6. FUROSEMIDE [Concomitant]
     Indication: FLUID RETENTION
     Dosage: 40MG AS NEEDED
  7. KLOR-CON [Concomitant]
     Indication: SUPPLEMENTATION THERAPY
     Dosage: 10MG AS NEEDED
  8. NASONEX [Concomitant]
     Indication: SEASONAL ALLERGY
     Dosage: AS NEEDED
  9. ALBUTEROL SULFATE [Concomitant]
     Indication: ASTHMA
     Dosage: AS NEEDED
  10. ADVAIR [Concomitant]
     Indication: ASTHMA
     Dosage: AS NEEDED

REACTIONS (9)
  - Suicidal ideation [Recovered/Resolved]
  - Paraesthesia [Recovered/Resolved]
  - Nightmare [Not Recovered/Not Resolved]
  - Fall [Recovered/Resolved]
  - Depression [Recovered/Resolved]
  - Hyperhidrosis [Not Recovered/Not Resolved]
  - Crying [Recovered/Resolved]
  - Prescribed overdose [Not Recovered/Not Resolved]
  - Drug effect decreased [Not Recovered/Not Resolved]
